FAERS Safety Report 9934961 (Version 2)
Quarter: 2014Q1

REPORT INFORMATION
  Report Type: Spontaneous
  Country: US (occurrence: US)
  Receive Date: 20140228
  Receipt Date: 20140326
  Transmission Date: 20141002
  Serious: Yes (Other)
  Sender: FDA-Public Use
  Company Number: US-SA-2014SA024485

PATIENT
  Age: 68 Year
  Sex: Female
  Weight: 56.24 kg

DRUGS (7)
  1. PLAVIX [Suspect]
     Indication: MYOCARDIAL INFARCTION
     Route: 048
     Dates: start: 20070531
  2. PLAVIX [Suspect]
     Indication: CORONARY ARTERY DISEASE
     Route: 048
     Dates: start: 20070531
  3. PLAVIX [Suspect]
     Indication: MYOCARDIAL INFARCTION
     Route: 048
  4. PLAVIX [Suspect]
     Indication: CORONARY ARTERY DISEASE
     Route: 048
  5. CLOPIDOGREL BISULFATE [Suspect]
     Route: 065
  6. ASPIRIN [Suspect]
     Indication: CORONARY ARTERY DISEASE
     Route: 065
     Dates: start: 20070531
  7. DICLOFENAC [Concomitant]
     Indication: ARTHRITIS
     Dosage: AS NEEDED OR 1 PER DAY
     Dates: start: 20130211

REACTIONS (4)
  - Chest discomfort [Recovered/Resolved]
  - Muscle spasms [Recovered/Resolved]
  - Rectal haemorrhage [Recovered/Resolved]
  - Inappropriate schedule of drug administration [Unknown]
